FAERS Safety Report 7375247-5 (Version None)
Quarter: 2011Q1

REPORT INFORMATION
  Report Type: 
  Country: None (occurrence: None)
  Receive Date: 20110325
  Receipt Date: 20110314
  Transmission Date: 20110831
  Serious: Yes (Hospitalization)
  Sender: FDA-Public Use
  Company Number: ES-ROCHE-766994

PATIENT
  Age: 54 Year
  Sex: Male

DRUGS (4)
  1. CISPLATIN [Suspect]
     Route: 042
     Dates: start: 20101109, end: 20110114
  2. DOCETAXEL [Suspect]
     Route: 042
     Dates: start: 20101109, end: 20110114
  3. AVASTIN [Suspect]
     Route: 042
     Dates: start: 20101109, end: 20110114
  4. OMEPRAZOLE [Concomitant]
     Indication: PROPHYLAXIS AGAINST GASTROINTESTINAL ULCER
     Dosage: FREQUENCY: DAILY
     Route: 048
     Dates: start: 20101109, end: 20110114

REACTIONS (2)
  - HEADACHE [None]
  - CONVULSION [None]
